FAERS Safety Report 6573431-1 (Version None)
Quarter: 2010Q1

REPORT INFORMATION
  Report Type: 
  Country: None (occurrence: None)
  Receive Date: 20100208
  Receipt Date: 20100128
  Transmission Date: 20100710
  Serious: Yes (Life-Threatening, Hospitalization)
  Sender: FDA-Public Use
  Company Number: FR-BAXTER-2010BH002129

PATIENT
  Age: 38 Year
  Sex: Female

DRUGS (17)
  1. GAMMAGARD LIQUID [Suspect]
     Indication: DRUG USE FOR UNKNOWN INDICATION
     Route: 042
     Dates: start: 20091112, end: 20091112
  2. CORTANCYL [Suspect]
     Indication: DRUG USE FOR UNKNOWN INDICATION
     Route: 048
  3. XARELTO [Suspect]
     Indication: DRUG USE FOR UNKNOWN INDICATION
     Route: 048
     Dates: start: 20090201, end: 20091112
  4. TRACLEER [Concomitant]
  5. NEORAL [Concomitant]
  6. AMLOR [Concomitant]
  7. LOSARTAN POTASSIUM [Concomitant]
  8. ZOCOR [Concomitant]
  9. XANAX [Concomitant]
  10. INIPOMP [Concomitant]
  11. ZYPREXA [Concomitant]
  12. MOTILIUM ^JANSSEN^ [Concomitant]
  13. SPECIAFOLDINE [Concomitant]
  14. CACIT VITAMINE D3 [Concomitant]
  15. DEDROGYL [Concomitant]
  16. LORMETAZEPAM [Concomitant]
  17. NEORECORMON ^BOEHRINGER MANNHEIM^ [Concomitant]

REACTIONS (9)
  - ABDOMINAL PAIN [None]
  - ABDOMINAL PAIN UPPER [None]
  - ANAEMIA [None]
  - DIEULAFOY'S VASCULAR MALFORMATION [None]
  - GASTRIC ULCER HAEMORRHAGE [None]
  - MELAENA [None]
  - PALLOR [None]
  - RECTAL HAEMORRHAGE [None]
  - SMALL INTESTINAL HAEMORRHAGE [None]
